FAERS Safety Report 5639901-5 (Version None)
Quarter: 2008Q1

REPORT INFORMATION
  Report Type: 
  Country: None (occurrence: None)
  Receive Date: 20080225
  Receipt Date: 20080213
  Transmission Date: 20080703
  Serious: Yes (Hospitalization)
  Sender: FDA-Public Use
  Company Number: B0508814A

PATIENT
  Age: 24 Month
  Sex: Male

DRUGS (1)
  1. LAMICTAL [Suspect]
     Dosage: SEE DOSE IN TEXT;
     Dates: start: 20080211

REACTIONS (6)
  - DYSGEUSIA [None]
  - FATIGUE [None]
  - LOSS OF CONTROL OF LEGS [None]
  - OVERDOSE [None]
  - PSYCHOMOTOR HYPERACTIVITY [None]
  - SOMNOLENCE [None]
